FAERS Safety Report 16790052 (Version 1)
Quarter: 2019Q3

REPORT INFORMATION
  Report Type: Spontaneous
  Country: DE (occurrence: DE)
  Receive Date: 20190910
  Receipt Date: 20190910
  Transmission Date: 20191005
  Serious: Yes (Congenital Anomaly)
  Sender: FDA-Public Use
  Company Number: DE-TORRENT-00004338

PATIENT
  Age: 1 Day
  Sex: Male
  Weight: 3 kg

DRUGS (3)
  1. NOVOPULMON [Suspect]
     Active Substance: BUDESONIDE
     Indication: ASTHMA
     Dosage: 0.8 [MG/D]
     Route: 064
     Dates: start: 20140927, end: 20141011
  2. FENOTEROL HYDROBROMIDE/IPRATROPIUM BROMIDE [Concomitant]
     Indication: ASTHMA
     Dosage: 0.1 [MG/D] / 0.04 [MG/D]/ ON DEMAND
     Route: 064
     Dates: start: 20140927, end: 20141011
  3. LEVETIRACETAM. [Suspect]
     Active Substance: LEVETIRACETAM
     Indication: EPILEPSY
     Dosage: 1000 [MG/D]
     Route: 064
     Dates: start: 20140927, end: 20141011

REACTIONS (3)
  - Pancreatic cyst [Not Recovered/Not Resolved]
  - Congenital hydronephrosis [Not Recovered/Not Resolved]
  - Foetal exposure during pregnancy [Unknown]

NARRATIVE: CASE EVENT DATE: 20141011
